FAERS Safety Report 14299425 (Version 12)
Quarter: 2019Q2

REPORT INFORMATION
  Report Type: Report from Study
  Country: CA (occurrence: CA)
  Receive Date: 20171219
  Receipt Date: 20190621
  Transmission Date: 20190711
  Serious: Yes (Other)
  Sender: FDA-Public Use
  Company Number: CA-ROCHE-1622005

PATIENT
  Age: 64 Year
  Sex: Female

DRUGS (9)
  1. ALEVE [Concomitant]
     Active Substance: NAPROXEN SODIUM
     Route: 065
  2. METHOTREXATE. [Suspect]
     Active Substance: METHOTREXATE
     Indication: PRODUCT USED FOR UNKNOWN INDICATION
     Route: 065
  3. METHYLPREDNISOLONE. [Concomitant]
     Active Substance: METHYLPREDNISOLONE
     Indication: PREMEDICATION
     Route: 042
     Dates: start: 20150604
  4. MORPHINE [Concomitant]
     Active Substance: MORPHINE
     Route: 065
  5. RITUXAN [Suspect]
     Active Substance: RITUXIMAB
     Indication: SJOGREN^S SYNDROME
  6. RITUXAN [Suspect]
     Active Substance: RITUXIMAB
     Indication: RHEUMATOID ARTHRITIS
     Dosage: ON DAY 1 AND 15?DATE OF PREVIOUS RITUXIMAB DOSE: 08/NOV/2017?DATE OF MOST RECENT DOSE OF RITUXIMAB I
     Route: 042
     Dates: start: 20150604
  7. PREDNISONE. [Concomitant]
     Active Substance: PREDNISONE
  8. ACETAMINOPHEN. [Concomitant]
     Active Substance: ACETAMINOPHEN
     Indication: PREMEDICATION
     Route: 048
     Dates: start: 20150604
  9. DIPHENHYDRAMINE HCL [Concomitant]
     Active Substance: DIPHENHYDRAMINE HYDROCHLORIDE
     Indication: PREMEDICATION
     Route: 048
     Dates: start: 20150604

REACTIONS (26)
  - Periodontitis [Not Recovered/Not Resolved]
  - Drug ineffective [Unknown]
  - Stomatitis [Not Recovered/Not Resolved]
  - Paraesthesia oral [Not Recovered/Not Resolved]
  - Hypotension [Unknown]
  - Heart rate irregular [Unknown]
  - Abdominal pain [Unknown]
  - Feeling abnormal [Not Recovered/Not Resolved]
  - Gingival pain [Not Recovered/Not Resolved]
  - Cough [Not Recovered/Not Resolved]
  - Gingivitis [Not Recovered/Not Resolved]
  - Arthralgia [Not Recovered/Not Resolved]
  - Fatigue [Not Recovered/Not Resolved]
  - Blood pressure systolic increased [Unknown]
  - Blood pressure diastolic abnormal [Unknown]
  - Precancerous skin lesion [Unknown]
  - Fungal infection [Not Recovered/Not Resolved]
  - Herpes zoster [Recovered/Resolved]
  - Mouth ulceration [Not Recovered/Not Resolved]
  - Vision blurred [Recovered/Resolved]
  - Scab [Not Recovered/Not Resolved]
  - Cystitis [Not Recovered/Not Resolved]
  - Aphthous ulcer [Not Recovered/Not Resolved]
  - Basal cell carcinoma [Unknown]
  - Urinary tract infection [Recovered/Resolved]
  - Pain in extremity [Not Recovered/Not Resolved]

NARRATIVE: CASE EVENT DATE: 20151203
